FAERS Safety Report 16672196 (Version 1)
Quarter: 2019Q3

REPORT INFORMATION
  Report Type: Report from Study
  Country: DE (occurrence: DE)
  Receive Date: 20190806
  Receipt Date: 20190806
  Transmission Date: 20191004
  Serious: Yes (Death, Hospitalization)
  Sender: FDA-Public Use
  Company Number: DE-BEH-2019103196

PATIENT
  Age: 48 Year
  Sex: Male
  Weight: 104.5 kg

DRUGS (14)
  1. FLUCONAZOLE. [Concomitant]
     Active Substance: FLUCONAZOLE
  2. PRIVIGEN [Suspect]
     Active Substance: HUMAN IMMUNOGLOBULIN G
     Indication: SELECTIVE IGG SUBCLASS DEFICIENCY
     Dosage: 20 GRAM, TOT
     Route: 042
     Dates: start: 20181213, end: 20181213
  3. PRIVIGEN [Suspect]
     Active Substance: HUMAN IMMUNOGLOBULIN G
     Indication: IMMUNODEFICIENCY
     Dosage: 20 GRAM, TOT
     Route: 042
     Dates: start: 20190311, end: 20190311
  4. TORASEMIDE [Concomitant]
     Active Substance: TORSEMIDE
  5. RAMIPRIL. [Concomitant]
     Active Substance: RAMIPRIL
  6. PRIVIGEN [Suspect]
     Active Substance: HUMAN IMMUNOGLOBULIN G
     Indication: NON-HODGKIN^S LYMPHOMA
     Dosage: 20 GRAM, TOT
     Route: 042
     Dates: start: 20190107, end: 20190107
  7. ZOPICLON [Concomitant]
     Active Substance: ZOPICLONE
     Dosage: 7.5 UNK, PRN
     Route: 065
  8. PRIVIGEN [Suspect]
     Active Substance: HUMAN IMMUNOGLOBULIN G
     Indication: FOLLICLE CENTRE LYMPHOMA, FOLLICULAR GRADE I, II, III STAGE III
     Dosage: 20 GRAM, TOT
     Route: 042
     Dates: start: 20190128, end: 20190128
  9. VITAMIN K [Concomitant]
     Active Substance: PHYTONADIONE
     Indication: PROTHROMBIN TIME PROLONGED
     Dosage: UNK
     Route: 065
     Dates: start: 201905
  10. ALLOPURINOL. [Concomitant]
     Active Substance: ALLOPURINOL
     Indication: HYPERURICAEMIA
  11. PRIVIGEN [Suspect]
     Active Substance: HUMAN IMMUNOGLOBULIN G
     Indication: MYELODYSPLASTIC SYNDROME
     Dosage: 20 GRAM, TOT
     Route: 042
     Dates: start: 20190401, end: 20190401
  12. OMEPRAZOLE. [Concomitant]
     Active Substance: OMEPRAZOLE
  13. ALLOPURINOL. [Concomitant]
     Active Substance: ALLOPURINOL
     Indication: GOUT
  14. MCP [Concomitant]
     Active Substance: METOCLOPRAMIDE HYDROCHLORIDE

REACTIONS (15)
  - T-cell lymphoma recurrent [Fatal]
  - Thrombocytopenia [Unknown]
  - Gastrointestinal haemorrhage [Unknown]
  - Melaena [Unknown]
  - Bone marrow infiltration [Fatal]
  - B-cell lymphoma recurrent [Fatal]
  - Candida sepsis [Unknown]
  - Anaemia [Unknown]
  - Systemic candida [Unknown]
  - Acute kidney injury [Unknown]
  - Central nervous system lesion [Unknown]
  - Varicella zoster virus infection [Unknown]
  - Non-Hodgkin^s lymphoma recurrent [Fatal]
  - Pyrexia [Unknown]
  - Hypotension [Unknown]

NARRATIVE: CASE EVENT DATE: 201904
